FAERS Safety Report 8069218-3 (Version None)
Quarter: 2012Q1

REPORT INFORMATION
  Report Type: 
  Country: None (occurrence: None)
  Receive Date: 20120125
  Receipt Date: 20120120
  Transmission Date: 20120608
  Serious: Yes (Hospitalization)
  Sender: FDA-Public Use
  Company Number: US-BRISTOL-MYERS SQUIBB COMPANY-16360091

PATIENT
  Age: 54 Year
  Sex: Female

DRUGS (4)
  1. TORISEL [Suspect]
     Indication: HEAD AND NECK CANCER
     Dates: start: 20110718, end: 20111213
  2. CARBOPLATIN [Suspect]
     Indication: HEAD AND NECK CANCER
  3. ESTRAMUSTINE SODIUM PHOSPHATE [Suspect]
     Indication: HEAD AND NECK CANCER
     Dosage: CAPS
  4. PACLITAXEL [Suspect]
     Indication: HEAD AND NECK CANCER

REACTIONS (4)
  - BRONCHOSPASM [None]
  - DYSPNOEA [None]
  - COUGH [None]
  - HYPERTENSION [None]
